FAERS Safety Report 4350823-2 (Version None)
Quarter: 2004Q2

REPORT INFORMATION
  Report Type: 
  Country: None (occurrence: None)
  Receive Date: 20040427
  Receipt Date: 20040414
  Transmission Date: 20050107
  Serious: Yes (Life-Threatening)
  Sender: FDA-Public Use
  Company Number: 2004024853

PATIENT
  Age: 62 Year
  Sex: Male

DRUGS (5)
  1. VFEND [Suspect]
     Indication: PNEUMONIA ASPERGILLUS
     Dosage: INTRAVENOUS
     Route: 042
     Dates: start: 20040401
  2. AMPHOTERICIN B [Concomitant]
  3. CASPOFUNGIN ACETATE (CASPOFUNGIN ACETATE) [Concomitant]
  4. PAROXETINE HCL [Concomitant]
  5. ALLOPURINOL [Concomitant]

REACTIONS (4)
  - CARDIAC FAILURE [None]
  - DYSPNOEA [None]
  - GRAFT VERSUS HOST DISEASE [None]
  - OEDEMA PERIPHERAL [None]
